FAERS Safety Report 16101360 (Version 1)
Quarter: 2019Q1

REPORT INFORMATION
  Report Type: Spontaneous
  Country: ZA (occurrence: ZA)
  Receive Date: 20190321
  Receipt Date: 20190321
  Transmission Date: 20190418
  Serious: Yes (Death, Hospitalization)
  Sender: FDA-Public Use
  Company Number: PHHY2019ZA063807

PATIENT
  Age: 92 Year
  Sex: Female

DRUGS (1)
  1. TOPRAFLUX [Suspect]
     Active Substance: PANTOPRAZOLE SODIUM
     Indication: DYSPEPSIA
     Dosage: 20 MG, UNK
     Route: 048
     Dates: start: 201810, end: 201903

REACTIONS (1)
  - Death [Fatal]

NARRATIVE: CASE EVENT DATE: 20190301
